FAERS Safety Report 14228665 (Version 13)
Quarter: 2019Q2

REPORT INFORMATION
  Report Type: Report from Study
  Country: None (occurrence: NL)
  Receive Date: 20171128
  Receipt Date: 20190612
  Transmission Date: 20190711
  Serious: Yes (Disabling, Other)
  Sender: FDA-Public Use
  Company Number: NL-ABBVIE-17K-114-2127992-00

PATIENT
  Age: 67 Year
  Sex: Female
  Weight: 75 kg

DRUGS (15)
  1. DUODOPA [Suspect]
     Active Substance: CARBIDOPA\LEVODOPA
     Dosage: MORNING DOSE: 6.5 CONTINUOUS DOSE: 2.6 EXTRA DOSE: 1.0
     Route: 050
     Dates: start: 201710, end: 201710
  2. DUODOPA [Suspect]
     Active Substance: CARBIDOPA\LEVODOPA
     Dosage: MD: 5, CD: 2.3, CONTINUOUS DOSE IS INCREASED TO 2.3 ML
     Route: 050
     Dates: start: 201710, end: 201710
  3. DUODOPA [Suspect]
     Active Substance: CARBIDOPA\LEVODOPA
     Dosage: MORNING DOSE: 5.5ML CONTINUOUS DOSE: 2.3ML EXTRA DOSE: 1.0ML
     Route: 050
     Dates: start: 201710, end: 201710
  4. SIFROL [Suspect]
     Active Substance: PRAMIPEXOLE
     Indication: PRODUCT USED FOR UNKNOWN INDICATION
     Dosage: FOR THE NIGHT, RAISED
     Route: 065
  5. DUODOPA [Suspect]
     Active Substance: CARBIDOPA\LEVODOPA
     Dosage: MORNING DOSE: 6.5 CONTINUOUS DOSE: 2.3 EXTRA DOSE: 1.0
     Route: 050
     Dates: start: 201710, end: 201710
  6. MADOPAR [Concomitant]
     Active Substance: BENSERAZIDE HYDROCHLORIDE\LEVODOPA
     Indication: PRODUCT USED FOR UNKNOWN INDICATION
  7. DUODOPA [Suspect]
     Active Substance: CARBIDOPA\LEVODOPA
     Dosage: MD: 5, CD: 2, ED: 1.0
     Route: 050
     Dates: start: 201710, end: 201710
  8. DUODOPA [Suspect]
     Active Substance: CARBIDOPA\LEVODOPA
     Dosage: MD 5, CD 3.4, ED 1.3
     Route: 050
  9. DUODOPA [Suspect]
     Active Substance: CARBIDOPA\LEVODOPA
     Dosage: MORNING DOSE 5.0 CONTINUOUS DOSE 3.0 EXTRA DOSE 1.3
     Route: 050
  10. DUODOPA [Suspect]
     Active Substance: CARBIDOPA\LEVODOPA
     Dosage: MD: 5.5, CD: 2.9, ED: 1.3
     Route: 050
  11. DUODOPA [Suspect]
     Active Substance: CARBIDOPA\LEVODOPA
     Indication: PARKINSON^S DISEASE
     Dosage: MD: 4.0, CD: 2.6, ED: 1.0
     Route: 050
     Dates: start: 20171002, end: 201710
  12. DUODOPA [Suspect]
     Active Substance: CARBIDOPA\LEVODOPA
     Dosage: MD: 5, CD: 2.9, CONTINUOUS DOSE IS INCREASED TO 2.9 ML EXTRA DOSE 1.3
     Route: 050
     Dates: start: 201710
  13. DUODOPA [Suspect]
     Active Substance: CARBIDOPA\LEVODOPA
     Dosage: MORNING DOSE 5.0 CONTINUOUS DOSE 2.9 EXTRA DOSE 1.3
     Route: 050
  14. DUODOPA [Suspect]
     Active Substance: CARBIDOPA\LEVODOPA
     Dosage: MORNING DOSE: 4.5ML CONTINUOUS DOSE: 2.0ML EXTRA DOSE: 1.0
     Route: 050
     Dates: start: 201710, end: 201710
  15. DUODOPA [Suspect]
     Active Substance: CARBIDOPA\LEVODOPA
     Dosage: MD 5, CD 3.1, ED 1.3
     Route: 050

REACTIONS (39)
  - Feeling abnormal [Recovering/Resolving]
  - Limb operation [Unknown]
  - Dyskinesia [Unknown]
  - Stoma site discharge [Not Recovered/Not Resolved]
  - Initial insomnia [Not Recovered/Not Resolved]
  - Headache [Recovered/Resolved]
  - Nightmare [Not Recovered/Not Resolved]
  - Nausea [Recovered/Resolved]
  - On and off phenomenon [Not Recovered/Not Resolved]
  - Hyperkinesia [Not Recovered/Not Resolved]
  - Freezing phenomenon [Not Recovered/Not Resolved]
  - Transient ischaemic attack [Not Recovered/Not Resolved]
  - Stoma site infection [Recovered/Resolved]
  - Cerebral haemorrhage [Not Recovered/Not Resolved]
  - Dyschezia [Recovered/Resolved]
  - Decreased appetite [Recovered/Resolved]
  - Erythema [Recovered/Resolved]
  - Nocturia [Not Recovered/Not Resolved]
  - Faeces hard [Not Recovered/Not Resolved]
  - Musculoskeletal stiffness [Not Recovered/Not Resolved]
  - Abdominal pain [Recovered/Resolved]
  - Therapeutic product effect incomplete [Recovering/Resolving]
  - Stoma site erythema [Not Recovered/Not Resolved]
  - Fibroma [Recovered/Resolved]
  - Insomnia [Not Recovered/Not Resolved]
  - Tension [Not Recovered/Not Resolved]
  - Fibroma [Not Recovered/Not Resolved]
  - Abnormal dreams [Not Recovered/Not Resolved]
  - Weight decreased [Not Recovered/Not Resolved]
  - Malaise [Not Recovered/Not Resolved]
  - Therapeutic product effect variable [Not Recovered/Not Resolved]
  - Somnolence [Not Recovered/Not Resolved]
  - Mobility decreased [Not Recovered/Not Resolved]
  - Muscle spasms [Not Recovered/Not Resolved]
  - Anal incontinence [Recovered/Resolved]
  - Headache [Not Recovered/Not Resolved]
  - Pain [Recovering/Resolving]
  - Dyskinesia [Not Recovered/Not Resolved]
  - Hyperkinesia [Recovered/Resolved]

NARRATIVE: CASE EVENT DATE: 2017
